FAERS Safety Report 18655025 (Version 1)
Quarter: 2020Q4

REPORT INFORMATION
  Report Type: Spontaneous
  Country: US (occurrence: US)
  Receive Date: 20201223
  Receipt Date: 20201223
  Transmission Date: 20210114
  Serious: No
  Sender: FDA-Public Use
  Company Number: None

PATIENT
  Age: 72 Year
  Sex: Male
  Weight: 69.84 kg

DRUGS (11)
  1. ASPIRIN 81MG [Concomitant]
     Active Substance: ASPIRIN
  2. LEVETIRACETAM 750MG [Concomitant]
     Active Substance: LEVETIRACETAM
  3. VITAMIN D 1000 UNITS [Concomitant]
  4. SPRYCEL [Suspect]
     Active Substance: DASATINIB
     Indication: CHRONIC MYELOID LEUKAEMIA
     Route: 048
     Dates: start: 20200722
  5. DAILY VITAMIN [Concomitant]
     Active Substance: VITAMINS
  6. MAGNESIUM OXIDE 400 240MG [Concomitant]
  7. ATORVASTATIN 80MG [Concomitant]
     Active Substance: ATORVASTATIN
  8. CO Q 10 100MG [Concomitant]
  9. GLUCOSAMINE 1500 COMPLEX [Concomitant]
  10. SILDENAFIL 20MG [Concomitant]
     Active Substance: SILDENAFIL
  11. ALLOPURINOL 100MG [Concomitant]
     Active Substance: ALLOPURINOL

REACTIONS (1)
  - Liver function test increased [None]

NARRATIVE: CASE EVENT DATE: 20201223
